FAERS Safety Report 12725330 (Version 3)
Quarter: 2019Q3

REPORT INFORMATION
  Report Type: Spontaneous
  Country: US (occurrence: US)
  Receive Date: 20160908
  Receipt Date: 20190909
  Transmission Date: 20191004
  Serious: Yes (Other)
  Sender: FDA-Public Use
  Company Number: US-ELI_LILLY_AND_COMPANY-US201608014344

PATIENT
  Sex: Male

DRUGS (2)
  1. CIALIS [Suspect]
     Active Substance: TADALAFIL
     Indication: ERECTILE DYSFUNCTION
     Dosage: 20 MG, OTHER
     Route: 065
     Dates: start: 20060717, end: 20130119
  2. CIALIS [Suspect]
     Active Substance: TADALAFIL
     Indication: ANDROGEN DEFICIENCY
     Dosage: 10 MG, OTHER
     Route: 065
     Dates: end: 20130119

REACTIONS (5)
  - Malignant melanoma in situ [Unknown]
  - Malignant melanoma [Unknown]
  - Malignant melanoma in situ [Unknown]
  - Conjunctivitis [Unknown]
  - Malignant melanoma [Unknown]

NARRATIVE: CASE EVENT DATE: 20111003
